FAERS Safety Report 6403504-5 (Version None)
Quarter: 2009Q4

REPORT INFORMATION
  Report Type: 
  Country: None (occurrence: None)
  Receive Date: 20091016
  Receipt Date: 20091012
  Transmission Date: 20100525
  Serious: Yes (Hospitalization)
  Sender: FDA-Public Use
  Company Number: US-AVENTIS-200919064US

PATIENT
  Sex: Female

DRUGS (2)
  1. LANTUS [Suspect]
     Dosage: DOSE: DEPENDS ON BLOOD SUGAR
     Route: 058
     Dates: start: 20090901, end: 20091013
  2. LANTUS [Suspect]
     Route: 058
     Dates: start: 20091013

REACTIONS (3)
  - BLOOD GLUCOSE INCREASED [None]
  - TRANSIENT ISCHAEMIC ATTACK [None]
  - VASCULAR OCCLUSION [None]
